FAERS Safety Report 18202110 (Version 10)
Quarter: 2025Q1

REPORT INFORMATION
  Report Type: Spontaneous
  Country: US (occurrence: US)
  Receive Date: 20200827
  Receipt Date: 20250314
  Transmission Date: 20250409
  Serious: Yes (Hospitalization, Other)
  Sender: PFIZER
  Company Number: US-PFIZER INC-2020328262

PATIENT
  Age: 74 Year
  Sex: Female
  Weight: 59.42 kg

DRUGS (18)
  1. XELJANZ [Suspect]
     Active Substance: TOFACITINIB CITRATE
     Indication: Colitis ulcerative
     Dosage: TWO 5MG TABLETS IN THE MORNING AND TWO 5MG TABLETS IN THE EVENING
     Route: 048
     Dates: start: 20200813
  2. XELJANZ [Suspect]
     Active Substance: TOFACITINIB CITRATE
     Dosage: 5 MG, 1X/DAY
     Route: 048
  3. XELJANZ [Suspect]
     Active Substance: TOFACITINIB CITRATE
     Dosage: 5 MG, 2X/DAY
     Route: 048
  4. XELJANZ [Suspect]
     Active Substance: TOFACITINIB CITRATE
     Route: 048
  5. CALCIUM [Concomitant]
     Active Substance: CALCIUM
  6. CRESTOR [Concomitant]
     Active Substance: ROSUVASTATIN CALCIUM
  7. CYANOCOBALAMIN [Concomitant]
     Active Substance: CYANOCOBALAMIN
  8. ESTRADIOL [Concomitant]
     Active Substance: ESTRADIOL
  9. HYZAAR [Concomitant]
     Active Substance: HYDROCHLOROTHIAZIDE\LOSARTAN POTASSIUM
  10. IMODIUM [Concomitant]
     Active Substance: LOPERAMIDE HYDROCHLORIDE
  11. LEVOTHYROXINE [Concomitant]
     Active Substance: LEVOTHYROXINE
  12. MOBIC [Concomitant]
     Active Substance: MELOXICAM
  13. PEPCID [Concomitant]
     Active Substance: FAMOTIDINE
  14. POTASSIUM [Concomitant]
     Active Substance: POTASSIUM
  15. PROTONIX [Concomitant]
     Active Substance: PANTOPRAZOLE SODIUM
  16. PROVERA [Concomitant]
     Active Substance: MEDROXYPROGESTERONE ACETATE
  17. SINEQUAN [Concomitant]
     Active Substance: DOXEPIN HYDROCHLORIDE
  18. VALSARTAN [Concomitant]
     Active Substance: VALSARTAN

REACTIONS (8)
  - Pulmonary embolism [Unknown]
  - Thrombosis [Recovering/Resolving]
  - Off label use [Unknown]
  - Intercepted product selection error [Unknown]
  - Fatigue [Unknown]
  - Headache [Unknown]
  - Eye disorder [Unknown]
  - Product dispensing error [Unknown]
